FAERS Safety Report 5363461-X (Version None)
Quarter: 2007Q2

REPORT INFORMATION
  Report Type: 
  Country: None (occurrence: None)
  Receive Date: 20070530
  Receipt Date: 20070222
  Transmission Date: 20071010
  Serious: No
  Sender: FDA-Public Use
  Company Number: 2006PV025168

PATIENT
  Age: 74 Year
  Sex: Female

DRUGS (11)
  1. BYETTA [Suspect]
     Indication: DIABETES MELLITUS NON-INSULIN-DEPENDENT
     Dosage: 10 MCG;BID;SC ; 5 MCG;BID;SC ; 10 MCG;QD;SC ; 5 MCG;BID;SC ;  MCG;BID;SC
     Route: 058
     Dates: start: 20061001, end: 20061101
  2. BYETTA [Suspect]
     Indication: DIABETES MELLITUS NON-INSULIN-DEPENDENT
     Dosage: 10 MCG;BID;SC ; 5 MCG;BID;SC ; 10 MCG;QD;SC ; 5 MCG;BID;SC ;  MCG;BID;SC
     Route: 058
     Dates: start: 20061001, end: 20061101
  3. BYETTA [Suspect]
     Indication: DIABETES MELLITUS NON-INSULIN-DEPENDENT
     Dosage: 10 MCG;BID;SC ; 5 MCG;BID;SC ; 10 MCG;QD;SC ; 5 MCG;BID;SC ;  MCG;BID;SC
     Route: 058
     Dates: start: 20061102, end: 20061130
  4. BYETTA [Suspect]
     Indication: DIABETES MELLITUS NON-INSULIN-DEPENDENT
     Dosage: 10 MCG;BID;SC ; 5 MCG;BID;SC ; 10 MCG;QD;SC ; 5 MCG;BID;SC ;  MCG;BID;SC
     Route: 058
     Dates: start: 20061103, end: 20061130
  5. BYETTA [Suspect]
     Indication: DIABETES MELLITUS NON-INSULIN-DEPENDENT
     Dosage: 10 MCG;BID;SC ; 5 MCG;BID;SC ; 10 MCG;QD;SC ; 5 MCG;BID;SC ;  MCG;BID;SC
     Route: 058
     Dates: start: 20061201, end: 20061205
  6. GLIPIZIDE [Concomitant]
  7. METFORMIN HCL [Concomitant]
  8. QUINAPRIL [Concomitant]
  9. COREG [Concomitant]
  10. BUMEX [Concomitant]
  11. ACCUPRIL [Concomitant]

REACTIONS (2)
  - BLOOD GLUCOSE INCREASED [None]
  - BLOOD PRESSURE INCREASED [None]
